FAERS Safety Report 9800111 (Version 2)
Quarter: 2014Q1

REPORT INFORMATION
  Report Type: Spontaneous
  Country: US (occurrence: US)
  Receive Date: 20140106
  Receipt Date: 20140106
  Transmission Date: 20141002
  Serious: No
  Sender: FDA-Public Use
  Company Number: US-GILEAD-2010-0032505

PATIENT
  Age: 82 Year
  Sex: Female
  Weight: 60.78 kg

DRUGS (13)
  1. LETAIRIS [Suspect]
     Indication: PULMONARY ARTERIAL HYPERTENSION
     Route: 048
     Dates: start: 20080506
  2. NITROGLYCERIN [Concomitant]
  3. CARTIA XT [Concomitant]
  4. COUMADIN [Concomitant]
  5. METOPROLOL [Concomitant]
  6. ASPIRIN [Concomitant]
  7. LASIX [Concomitant]
  8. POTASSIUM CHLORIDE [Concomitant]
  9. PERCOCET [Concomitant]
  10. AMPICILLIN [Concomitant]
  11. CALCIUM [Concomitant]
  12. MAGNESIUM [Concomitant]
  13. MULTIVITAMINS [Concomitant]

REACTIONS (1)
  - Erythema [Unknown]
